FAERS Safety Report 4495237-X (Version None)
Quarter: 2004Q4

REPORT INFORMATION
  Report Type: 
  Country: None (occurrence: None)
  Receive Date: 20041108
  Receipt Date: 20040723
  Transmission Date: 20050328
  Serious: No
  Sender: FDA-Public Use
  Company Number: US-GLAXOSMITHKLINE-A0519654A

PATIENT

DRUGS (3)
  1. AVANDAMET [Suspect]
     Route: 048
     Dates: start: 20030401, end: 20040101
  2. MICARDIS HCT [Suspect]
     Indication: ILL-DEFINED DISORDER
     Route: 048
     Dates: start: 20030401
  3. LEVOTHROID [Concomitant]
     Indication: HYPOTHYROIDISM
     Route: 065

REACTIONS (7)
  - ARTHRALGIA [None]
  - FATIGUE [None]
  - HYPOAESTHESIA [None]
  - JOINT SWELLING [None]
  - MYALGIA [None]
  - OEDEMA PERIPHERAL [None]
  - WEIGHT INCREASED [None]
